FAERS Safety Report 12581233 (Version 1)
Quarter: 2016Q3

REPORT INFORMATION
  Report Type: Spontaneous
  Country: DE (occurrence: DE)
  Receive Date: 20160721
  Receipt Date: 20160721
  Transmission Date: 20161109
  Serious: Yes (Other)
  Sender: FDA-Public Use
  Company Number: DE-009507513-1607DEU007950

PATIENT
  Age: 69 Year
  Sex: Male

DRUGS (1)
  1. ZOCOR [Suspect]
     Active Substance: SIMVASTATIN
     Dosage: UNKNOWN
     Route: 048
     Dates: start: 2008, end: 20150715

REACTIONS (1)
  - Myocardial infarction [Unknown]
